FAERS Safety Report 6715517-4 (Version None)
Quarter: 2010Q2

REPORT INFORMATION
  Report Type: 
  Country: None (occurrence: None)
  Receive Date: 20100507
  Receipt Date: 20100426
  Transmission Date: 20101027
  Serious: Yes (Disabling, Other)
  Sender: FDA-Public Use
  Company Number: PHHY2009DE09700

PATIENT
  Sex: Female
  Weight: 80 kg

DRUGS (2)
  1. ACLASTA [Suspect]
     Indication: OSTEOPOROSIS
     Dosage: 5 MG ONCE YEARLY
     Route: 042
     Dates: start: 20071214, end: 20081027
  2. ACLASTA [Suspect]
     Indication: SPINAL FRACTURE

REACTIONS (12)
  - BACK PAIN [None]
  - EYE SWELLING [None]
  - MOVEMENT DISORDER [None]
  - OSTEONECROSIS OF JAW [None]
  - PAIN IN EXTREMITY [None]
  - PAIN IN JAW [None]
  - SPLINTER [None]
  - SUTURE REMOVAL [None]
  - TOOTH EXTRACTION [None]
  - TOOTH SOCKET SUTURE [None]
  - TOOTHACHE [None]
  - X-RAY DENTAL [None]
